FAERS Safety Report 7387197-9 (Version None)
Quarter: 2011Q1

REPORT INFORMATION
  Report Type: 
  Country: None (occurrence: None)
  Receive Date: 20110331
  Receipt Date: 20110328
  Transmission Date: 20110831
  Serious: Yes (Hospitalization)
  Sender: FDA-Public Use
  Company Number: B0709049A

PATIENT
  Age: 30 Year
  Sex: Female

DRUGS (3)
  1. CORTANCYL [Concomitant]
     Dosage: 5MG PER DAY
  2. PLAQUENIL [Concomitant]
  3. REVOLADE [Suspect]
     Dosage: 50MG PER DAY
     Route: 048
     Dates: start: 20110101, end: 20110101

REACTIONS (4)
  - PLATELET COUNT INCREASED [None]
  - PULMONARY EMBOLISM [None]
  - COUGH [None]
  - CHEST PAIN [None]
